FAERS Safety Report 16539926 (Version 1)
Quarter: 2019Q3

REPORT INFORMATION
  Report Type: Spontaneous
  Country: PR (occurrence: PR)
  Receive Date: 20190708
  Receipt Date: 20190708
  Transmission Date: 20191004
  Serious: Yes (Other)
  Sender: FDA-Public Use
  Company Number: PR-PFIZER INC-2019265315

PATIENT
  Age: 45 Year

DRUGS (1)
  1. LYRICA [Suspect]
     Active Substance: PREGABALIN
     Dosage: 400 MG, TWICE DAILY (TWO 200 MG CAPSULES EVERY 12 HOURS)
     Route: 048

REACTIONS (2)
  - Drug dependence [Unknown]
  - Prescribed overdose [Unknown]
